FAERS Safety Report 4794508-7 (Version None)
Quarter: 2005Q4

REPORT INFORMATION
  Report Type: 
  Country: None (occurrence: None)
  Receive Date: 20051011
  Receipt Date: 20051003
  Transmission Date: 20060501
  Serious: Yes (Death, Hospitalization)
  Sender: FDA-Public Use
  Company Number: US-ABBOTT-05P-163-0312719-00

PATIENT
  Sex: Female
  Weight: 84.444 kg

DRUGS (11)
  1. SYNTHROID [Suspect]
     Indication: HYPOTHYROIDISM
     Route: 048
     Dates: start: 20030101, end: 20050928
  2. LANTUS [Concomitant]
     Indication: DIABETES MELLITUS
     Route: 058
     Dates: end: 20050928
  3. HUMALOG [Concomitant]
     Indication: DIABETES MELLITUS
     Route: 058
     Dates: end: 20050928
  4. AMIODARONE HYDROCHLORIDE [Concomitant]
     Indication: DIABETES MELLITUS
     Route: 048
     Dates: end: 20050928
  5. TEMAZEPAM [Concomitant]
     Indication: INSOMNIA
     Route: 048
     Dates: end: 20050928
  6. LORAZEPAM [Concomitant]
     Indication: ANXIETY
     Route: 048
     Dates: end: 20050928
  7. GABAPENTIN [Concomitant]
     Indication: NEUROPATHY PERIPHERAL
     Route: 048
     Dates: end: 20050928
  8. TOPROL-XL [Concomitant]
     Indication: BLOOD PRESSURE INCREASED
     Route: 048
     Dates: end: 20050928
  9. DOCUSATE SODIUM [Concomitant]
     Indication: CONSTIPATION
     Route: 048
     Dates: end: 20050928
  10. ESOMEPRAZOLE [Concomitant]
     Indication: GASTROOESOPHAGEAL REFLUX DISEASE
     Route: 048
     Dates: end: 20050928
  11. NITROGLYCERIN [Concomitant]
     Indication: CHEST PAIN
     Route: 060
     Dates: end: 20050928

REACTIONS (2)
  - COLITIS ISCHAEMIC [None]
  - SEPTIC SHOCK [None]
